FAERS Safety Report 16586087 (Version 1)
Quarter: 2019Q3

REPORT INFORMATION
  Report Type: Spontaneous
  Country: US (occurrence: US)
  Receive Date: 20190717
  Receipt Date: 20190717
  Transmission Date: 20191004
  Serious: No
  Sender: FDA-Public Use
  Company Number: US-TAKEDA-2019TUS043639

PATIENT
  Age: 63 Year
  Sex: Female

DRUGS (1)
  1. ALUNBRIG [Suspect]
     Active Substance: BRIGATINIB
     Indication: NON-SMALL CELL LUNG CANCER METASTATIC
     Dosage: 180 MILLIGRAM, QD
     Route: 048

REACTIONS (1)
  - Liver function test increased [Unknown]
